FAERS Safety Report 7350978-1 (Version None)
Quarter: 2011Q1

REPORT INFORMATION
  Report Type: 
  Country: None (occurrence: None)
  Receive Date: 20110314
  Receipt Date: 20110308
  Transmission Date: 20110831
  Serious: Yes (Hospitalization)
  Sender: FDA-Public Use
  Company Number: JP-PFIZER INC-2011051173

PATIENT
  Age: 79 Year
  Sex: Male

DRUGS (1)
  1. SUTENT [Suspect]
     Indication: GASTROINTESTINAL STROMAL TUMOUR
     Dosage: 50 MG, 1X/DAY
     Route: 048
     Dates: start: 20110222, end: 20110306

REACTIONS (1)
  - DISSEMINATED INTRAVASCULAR COAGULATION [None]
